FAERS Safety Report 10515193 (Version 1)
Quarter: 2014Q4

REPORT INFORMATION
  Report Type: Spontaneous
  Country: GB (occurrence: GB)
  Receive Date: 20141014
  Receipt Date: 20141014
  Transmission Date: 20150528
  Serious: Yes (Hospitalization, Other)
  Sender: FDA-Public Use
  Company Number: GB-AMGEN-GBRSP2014077275

PATIENT
  Age: 77 Year
  Sex: Male

DRUGS (1)
  1. MIMPARA [Suspect]
     Active Substance: CINACALCET HYDROCHLORIDE
     Indication: BLOOD PARATHYROID HORMONE INCREASED
     Route: 065

REACTIONS (2)
  - Drug effect incomplete [Unknown]
  - Hypercalcaemia [Recovering/Resolving]
